FAERS Safety Report 4273160-3 (Version None)
Quarter: 2004Q1

REPORT INFORMATION
  Report Type: 
  Country: None (occurrence: None)
  Receive Date: 20040116
  Receipt Date: 20040107
  Transmission Date: 20041129
  Serious: Yes (Other)
  Sender: FDA-Public Use
  Company Number: PHEH2004US00635

PATIENT
  Age: 59 Year
  Sex: Female

DRUGS (14)
  1. ZOMETA [Suspect]
     Indication: METASTASES TO BONE
     Dosage: 4 MG, QMO
     Route: 042
     Dates: start: 20020211, end: 20020826
  2. WARFARIN SODIUM [Concomitant]
     Indication: DEEP VEIN THROMBOSIS
     Dosage: 1 MG, QD
     Dates: start: 20010702, end: 20020826
  3. PAXIL [Concomitant]
     Indication: DEPRESSION
     Dosage: 20 MG, QD
     Dates: start: 19990216, end: 20030101
  4. OXYCONTIN [Concomitant]
     Indication: PAIN
     Dosage: 10 MG, BID
     Dates: start: 20000627, end: 20030101
  5. RESTORIL [Concomitant]
     Indication: HYPERTENSION
     Dosage: 15 MG, QD
     Dates: start: 20010501, end: 20030101
  6. DIAZEPAM [Concomitant]
     Indication: INSOMNIA
     Dosage: 10 MG, QD
     Dates: start: 19950714, end: 20030101
  7. NIFEREX [Concomitant]
     Indication: ANAEMIA
     Dosage: 150 MG, QD
     Dates: start: 20000918, end: 20030101
  8. ZESTRIL [Concomitant]
     Indication: HYPERTENSION
     Dosage: 5 MG, QD
     Dates: start: 20010806, end: 20030101
  9. OXYIR [Concomitant]
     Indication: PAIN
     Dosage: 5 MG, PRN
     Dates: start: 20010806, end: 20030101
  10. LAMOTRIGINE [Concomitant]
     Indication: CONVULSION
     Dosage: 25 MG, TID
     Dates: start: 20020708, end: 20030101
  11. GABAPENTIN [Concomitant]
     Indication: CONVULSION
     Dosage: 300 MG, TID
     Dates: start: 20021009, end: 20030101
  12. ERYTHROMYCIN [Concomitant]
     Indication: PROPHYLAXIS
     Dosage: 333 MG, TID
     Dates: start: 20020708, end: 20030101
  13. PERCOCET [Concomitant]
     Indication: PAIN
     Dates: end: 20030101
  14. KEFLEX [Concomitant]

REACTIONS (5)
  - DENTAL CARIES [None]
  - INFECTION [None]
  - JAW DISORDER [None]
  - OSTEONECROSIS [None]
  - SINUSITIS [None]
